FAERS Safety Report 7620849-1 (Version None)
Quarter: 2011Q3

REPORT INFORMATION
  Report Type: 
  Country: None (occurrence: None)
  Receive Date: 20110719
  Receipt Date: 20110714
  Transmission Date: 20111222
  Serious: Yes (Life-Threatening, Hospitalization)
  Sender: FDA-Public Use
  Company Number: CHPA2011US09346

PATIENT
  Age: 3 Month
  Sex: Female

DRUGS (1)
  1. TRIAMINIC DAY TIME COLD + COUGH [Suspect]
     Dosage: UNK, UNK
     Route: 048
     Dates: start: 20110708, end: 20110708

REACTIONS (2)
  - RESPIRATORY FAILURE [None]
  - OVERDOSE [None]
